FAERS Safety Report 10070028 (Version 4)
Quarter: 2014Q2

REPORT INFORMATION
  Report Type: Spontaneous
  Country: GB (occurrence: None)
  Receive Date: 20140408
  Receipt Date: 20140428
  Transmission Date: 20141212
  Serious: Yes (Other)
  Sender: FDA-Public Use
  Company Number: AUR-APL-2014-03903

PATIENT
  Sex: Female

DRUGS (3)
  1. METFORMIN [Suspect]
     Indication: DIABETES MELLITUS
     Dosage: UNKNOWN  -  THERAPY  DATES  - STOPPED
  2. IBUPROFEN [Suspect]
     Indication: PRODUCT USED FOR UNKNOWN INDICATION
     Dosage: UNKNOWN - THERAPY DATES - STOPPED
  3. ELIQUIS [Suspect]
     Indication: HIP ARTHROPLASTY
     Dosage: UNKNOWN  - THERAPY DATES - STOPPED

REACTIONS (3)
  - Creatinine renal clearance increased [None]
  - Drug interaction [None]
  - Creatinine renal clearance abnormal [None]
